FAERS Safety Report 10716504 (Version 3)
Quarter: 2015Q1

REPORT INFORMATION
  Report Type: Spontaneous
  Country: DE (occurrence: DE)
  Receive Date: 20150116
  Receipt Date: 20150331
  Transmission Date: 20150721
  Serious: Yes (Death, Hospitalization, Other)
  Sender: FDA-Public Use
  Company Number: DE-JNJFOC-20150108746

PATIENT
  Age: 87 Year
  Sex: Female
  Weight: 61 kg

DRUGS (11)
  1. XARELTO [Suspect]
     Active Substance: RIVAROXABAN
     Indication: PRODUCT USED FOR UNKNOWN INDICATION
     Dosage: QD (AT NIGHT)
     Route: 048
  2. ADCIRCA [Suspect]
     Active Substance: TADALAFIL
     Indication: PRODUCT USED FOR UNKNOWN INDICATION
     Route: 065
  3. VENTAVIS [Suspect]
     Active Substance: ILOPROST
     Indication: PULMONARY ARTERIAL HYPERTENSION
     Route: 055
     Dates: start: 20140924, end: 201412
  4. OMEP [Concomitant]
     Active Substance: OMEPRAZOLE
     Route: 065
  5. VERAPAMIL [Concomitant]
     Active Substance: VERAPAMIL HYDROCHLORIDE
     Route: 065
  6. TAXOFIT [Concomitant]
     Route: 065
  7. ANTISTAX [Concomitant]
     Active Substance: VITIS VINIFERA FLOWERING TOP
     Route: 065
  8. TORASEMID [Concomitant]
     Active Substance: TORSEMIDE
     Route: 065
  9. TRACLEER [Concomitant]
     Active Substance: BOSENTAN\BOSENTAN MONOHYDRATE
     Route: 065
  10. VENLAFAXINE [Concomitant]
     Active Substance: VENLAFAXINE HYDROCHLORIDE
     Route: 065
  11. RESTEX [Concomitant]
     Active Substance: BENSERAZIDE
     Route: 065

REACTIONS (23)
  - Fall [Unknown]
  - Tooth disorder [Recovering/Resolving]
  - Vaginal disorder [Unknown]
  - Spondylolisthesis [Unknown]
  - Dyspnoea [Unknown]
  - Nausea [Unknown]
  - Cardiac failure [Fatal]
  - Mucosal haemorrhage [Recovering/Resolving]
  - Labelled drug-drug interaction medication error [Unknown]
  - Vomiting [Unknown]
  - Cardiac flutter [Unknown]
  - Visual acuity reduced [Not Recovered/Not Resolved]
  - Spinal column stenosis [Unknown]
  - Vaginal haemorrhage [Unknown]
  - Haemorrhage [Unknown]
  - Atrophic vulvovaginitis [Unknown]
  - Ageusia [Unknown]
  - Spinal compression fracture [Unknown]
  - Spinal compression fracture [Unknown]
  - Oral disorder [Unknown]
  - Vaginal infection [Unknown]
  - Decreased appetite [Recovering/Resolving]
  - Tooth fracture [Unknown]

NARRATIVE: CASE EVENT DATE: 2014
